FAERS Safety Report 7322880-2 (Version None)
Quarter: 2011Q1

REPORT INFORMATION
  Report Type: 
  Country: None (occurrence: None)
  Receive Date: 20110301
  Receipt Date: 20110215
  Transmission Date: 20110831
  Serious: Yes (Hospitalization)
  Sender: FDA-Public Use
  Company Number: US-MYLANLABS-2011S1003254

PATIENT
  Age: 11 Month
  Sex: Male

DRUGS (1)
  1. BUPROPION HYDROCHLORIDE [Suspect]
     Indication: ACCIDENTAL OVERDOSE
     Dosage: 30 PILLS (300MG EACH, SUSTAINED RELEASE)
     Route: 048

REACTIONS (6)
  - ACCIDENTAL OVERDOSE [None]
  - HYPOTENSION [None]
  - GRAND MAL CONVULSION [None]
  - METABOLIC ACIDOSIS [None]
  - RESPIRATORY DISTRESS [None]
  - TACHYCARDIA [None]
